FAERS Safety Report 11139160 (Version 1)
Quarter: 2015Q2

REPORT INFORMATION
  Report Type: Spontaneous
  Country: US (occurrence: US)
  Receive Date: 20150527
  Receipt Date: 20150527
  Transmission Date: 20150821
  Serious: No
  Sender: FDA-Public Use
  Company Number: US-MALLINCKRODT-T201404308

PATIENT
  Age: 53 Year
  Sex: Male
  Weight: 67 kg

DRUGS (1)
  1. H.P. ACTHAR [Suspect]
     Active Substance: CORTICOTROPIN
     Indication: BRAIN MASS
     Dosage: UNK
     Route: 058
     Dates: start: 201409

REACTIONS (5)
  - Product use issue [Unknown]
  - Insomnia [Recovering/Resolving]
  - Product quality issue [Unknown]
  - Pain [None]
  - Malaise [Recovering/Resolving]

NARRATIVE: CASE EVENT DATE: 20141124
